FAERS Safety Report 10555155 (Version 1)
Quarter: 2014Q4

REPORT INFORMATION
  Report Type: Spontaneous
  Country: US (occurrence: None)
  Receive Date: 20141029
  Receipt Date: 20141029
  Transmission Date: 20150529
  Serious: Yes (Other)
  Sender: FDA-Public Use
  Company Number: None

PATIENT
  Age: 19 Year
  Sex: Female
  Weight: 49.9 kg

DRUGS (1)
  1. CELEXA [Suspect]
     Active Substance: CITALOPRAM HYDROBROMIDE
     Indication: AUTISM
     Route: 048
     Dates: start: 20140108, end: 20140215

REACTIONS (6)
  - Stab wound [None]
  - Limb injury [None]
  - Physical assault [None]
  - Laceration [None]
  - Wrist fracture [None]
  - Impaired work ability [None]

NARRATIVE: CASE EVENT DATE: 20140215
